FAERS Safety Report 10548258 (Version 1)
Quarter: 2014Q4

REPORT INFORMATION
  Report Type: Spontaneous
  Country: US (occurrence: US)
  Receive Date: 20141028
  Receipt Date: 20141028
  Transmission Date: 20150529
  Serious: Yes (Death, Hospitalization)
  Sender: FDA-Public Use
  Company Number: US-ROCHE-1480094

PATIENT
  Age: 77 Year
  Sex: Male

DRUGS (1)
  1. ACTIVASE [Suspect]
     Active Substance: ALTEPLASE
     Indication: ISCHAEMIC STROKE
     Route: 065

REACTIONS (5)
  - Death [Fatal]
  - Neurological symptom [Fatal]
  - Respiratory disorder [Unknown]
  - Haemorrhagic transformation stroke [Fatal]
  - Cardiac failure congestive [Fatal]
